FAERS Safety Report 7533153-7 (Version None)
Quarter: 2011Q2

REPORT INFORMATION
  Report Type: 
  Country: None (occurrence: None)
  Receive Date: 20110608
  Receipt Date: 20021016
  Transmission Date: 20111010
  Serious: Yes (Hospitalization)
  Sender: FDA-Public Use
  Company Number: PHBS2002CA12552

PATIENT
  Sex: Female

DRUGS (2)
  1. COMTAN [Suspect]
     Dosage: 200 MG, TID
     Route: 048
     Dates: start: 20020913
  2. ANTIHYPERTENSIVE DRUGS [Concomitant]
     Indication: HYPERTENSION
     Route: 065

REACTIONS (2)
  - ANGINA PECTORIS [None]
  - HYPERTENSION [None]
